FAERS Safety Report 23460714 (Version 1)
Quarter: 2024Q1

REPORT INFORMATION
  Report Type: Spontaneous
  Country: US (occurrence: US)
  Receive Date: 20240131
  Receipt Date: 20240131
  Transmission Date: 20240410
  Serious: No
  Sender: FDA-Public Use
  Company Number: US-009507513-2401USA000823

PATIENT
  Age: 90 Year
  Sex: Female

DRUGS (2)
  1. BELSOMRA [Suspect]
     Active Substance: SUVOREXANT
     Indication: Insomnia
     Dosage: 15 MILLIGRAM
     Route: 048
     Dates: start: 20240102, end: 20240103
  2. BELSOMRA [Suspect]
     Active Substance: SUVOREXANT
     Indication: Head discomfort

REACTIONS (3)
  - Drug ineffective [Not Recovered/Not Resolved]
  - Oral discomfort [Not Recovered/Not Resolved]
  - Product use in unapproved indication [Not Recovered/Not Resolved]

NARRATIVE: CASE EVENT DATE: 20240101
